FAERS Safety Report 8691447 (Version 4)
Quarter: 2012Q4

REPORT INFORMATION
  Report Type: 
  Country: US (occurrence: US)
  Receive Date: 20120730
  Receipt Date: 20121018
  Transmission Date: 20130627
  Serious: Yes (Other)
  Sender: FDA-Public Use
  Company Number: US-PFIZER INC-2012181739

PATIENT
  Age: 57 Year
  Sex: Female
  Weight: 90.7 kg

DRUGS (10)
  1. LYRICA [Suspect]
     Indication: FIBROMYALGIA
     Dosage: UNK
     Dates: end: 2010
  2. LYRICA [Suspect]
     Indication: CHONDROSARCOMA
     Dosage: 75 mg, 2x/day
     Dates: start: 201207
  3. ADVIL [Concomitant]
     Indication: DEPRESSION
     Dosage: 150 mg, daily
  4. ADVIL [Concomitant]
     Indication: SLEEP DISORDER
  5. VITAMIN D [Concomitant]
     Indication: VITAMIN D DEFICIENCY
     Dosage: 800 mg, daily
  6. ESTER-C [Concomitant]
     Indication: IMMUNE ENHANCEMENT THERAPY
     Dosage: UNK
  7. ELAVIL [Concomitant]
     Indication: DEPRESSION
     Dosage: 150 mg, daily
  8. NEXIUM [Concomitant]
     Dosage: UNK
  9. PROPRANOLOL [Concomitant]
     Indication: ANXIETY
     Dosage: UNK
  10. WELLBUTRIN [Concomitant]
     Indication: DEPRESSION
     Dosage: UNK

REACTIONS (6)
  - Fibromyalgia [Unknown]
  - Activities of daily living impaired [Unknown]
  - Fatigue [Unknown]
  - Malaise [Unknown]
  - Drug ineffective [Unknown]
  - Pain [Unknown]
